FAERS Safety Report 9200973 (Version 2)
Quarter: 2013Q2

REPORT INFORMATION
  Report Type: Spontaneous
  Country: US (occurrence: None)
  Receive Date: 20130327
  Receipt Date: 20130508
  Transmission Date: 20140414
  Serious: Yes (Hospitalization)
  Sender: FDA-Public Use
  Company Number: 201204030

PATIENT
  Age: 68 Year
  Sex: Male
  Weight: 107.96 kg

DRUGS (8)
  1. XIAFLEX [Suspect]
     Indication: DUPUYTREN^S CONTRACTURE
     Dosage: 1 IN 1 D, INTRALESIONAL
     Dates: start: 20100928, end: 20100928
  2. AA4500 [Suspect]
     Indication: DUPUYTREN^S CONTRACTURE
     Dosage: 1 IN 1 D, INTRALESIONAL
     Dates: start: 20071203, end: 20071203
  3. LOPID (GEMFIBROZIL) [Concomitant]
  4. PREVACID (LANSOPRAZOLE) [Concomitant]
  5. VERAPAMIL (VERAPAMIL) [Concomitant]
  6. LYRICA (PREGABALIN) [Concomitant]
  7. VITAMIN E (TOCOPHEROL) [Concomitant]
  8. MULTIVITAMIN (ASCORBIC ACID) [Concomitant]

REACTIONS (6)
  - Dyspnoea [None]
  - Panic attack [None]
  - Pulmonary mass [None]
  - Coronary artery disease [None]
  - Condition aggravated [None]
  - Anxiety [None]
